FAERS Safety Report 23887808 (Version 4)
Quarter: 2024Q3

REPORT INFORMATION
  Report Type: Spontaneous
  Country: US (occurrence: US)
  Receive Date: 20240523
  Receipt Date: 20240730
  Transmission Date: 20241016
  Serious: Yes (Other)
  Sender: APELLIS PHARMACEUTICALS
  Company Number: US-APELLIS-APL-2024-004426

PATIENT

DRUGS (18)
  1. SYFOVRE [Suspect]
     Active Substance: PEGCETACOPLAN
     Indication: Product used for unknown indication
     Dosage: OD
     Route: 031
  2. VABYSMO [Suspect]
     Active Substance: FARICIMAB\FARICIMAB-SVOA
     Indication: Product used for unknown indication
  3. ELIQUIS [Concomitant]
     Active Substance: APIXABAN
     Indication: Product used for unknown indication
     Dosage: 5.000MG BID
  4. VITAMIN K [Concomitant]
     Active Substance: PHYTONADIONE
     Indication: Product used for unknown indication
     Dosage: 100.000MG
     Route: 048
  5. TYLENOL [Concomitant]
     Active Substance: ACETAMINOPHEN
     Indication: Product used for unknown indication
     Dosage: UNKNOWN
     Route: 048
  6. LEVOFLOXACIN [Concomitant]
     Active Substance: LEVOFLOXACIN
     Indication: Product used for unknown indication
     Dosage: 500.000MG QD
  7. ENTYVIO [Concomitant]
     Active Substance: VEDOLIZUMAB
     Indication: Colitis ulcerative
     Dosage: EVERY 4 WEEKS
  8. CORTISONE ACETATE [Concomitant]
     Active Substance: CORTISONE ACETATE
     Dosage: INJECTION (SHOULDER)
     Dates: start: 20240424
  9. SIMVASTATIN [Concomitant]
     Active Substance: SIMVASTATIN
     Dosage: 80 MG, ORAL FILM COATED TAB, 1 TABLET, QDAY BY MOUTH
  10. OPIUM TINCTURE [Concomitant]
     Active Substance: MORPHINE
     Indication: Product used for unknown indication
     Dosage: PRN, 1ML, QID, BY MOUTH.
  11. VITAMINS [Concomitant]
     Active Substance: VITAMINS
     Dosage: 2 TABLETS, QAM, BY MOUTH
  12. VITAMIN B12 [Concomitant]
     Active Substance: CYANOCOBALAMIN
     Dosage: 500 MCG, 1 TABLET, QDAY
  13. FERROUS SULFATE [Concomitant]
     Active Substance: FERROUS SULFATE
     Dosage: 1MG, QDAY, BY MOUTH
  14. CALCIUM CITRATE [Concomitant]
     Active Substance: CALCIUM CITRATE
     Dosage: CALCIUM CITRATE 1000MG WITH D3, TABLET, QDAY, BY MOUTH
  15. VITAMIN D3 [Concomitant]
     Active Substance: CHOLECALCIFEROL
     Dosage: 3000 UNT, ORAL TABLET, 1 QDAY, BY MOUTH
  16. VANIPLY [Concomitant]
     Active Substance: DIMETHICONE
     Dosage: 1MG, PRN, TOPICAL
  17. ALFUZOSIN HYDROCHLORIDE [Concomitant]
     Active Substance: ALFUZOSIN HYDROCHLORIDE
     Indication: Product used for unknown indication
     Dosage: 10 MG, 24HR EXTENDED RELEASE ORAL TABLET, QDAY, BY MOUTH
  18. PREDNISOLONE [Suspect]
     Active Substance: PREDNISOLONE
     Dosage: CONTINUE Q2H WA, FOR THE NEXT 24HRS SINCE 13-APR-2024, THEN DECREASE TO QID.

REACTIONS (4)
  - Bacterial endophthalmitis [Unknown]
  - Ocular hypertension [Unknown]
  - Vitreous opacities [Not Recovered/Not Resolved]
  - Condition aggravated [Not Recovered/Not Resolved]

NARRATIVE: CASE EVENT DATE: 20240413
